FAERS Safety Report 20131912 (Version 1)
Quarter: 2021Q4

REPORT INFORMATION
  Report Type: Spontaneous
  Country: US (occurrence: US)
  Receive Date: 20211130
  Receipt Date: 20211130
  Transmission Date: 20220304
  Serious: No
  Sender: FDA-Public Use
  Company Number: US-TAKEDA-2021TUS075011

PATIENT
  Sex: Male
  Weight: 29 kg

DRUGS (1)
  1. GAMMAGARD LIQUID [Suspect]
     Active Substance: HUMAN IMMUNOGLOBULIN G
     Indication: Encephalitis autoimmune
     Dosage: 14 GRAM, QD
     Route: 042

REACTIONS (3)
  - Incorrect dose administered [Unknown]
  - Off label use [Unknown]
  - No adverse event [Unknown]
